FAERS Safety Report 22395194 (Version 1)
Quarter: 2023Q2

REPORT INFORMATION
  Report Type: Spontaneous
  Country: US (occurrence: US)
  Receive Date: 20230601
  Receipt Date: 20230601
  Transmission Date: 20230721
  Serious: Yes (Other)
  Sender: FDA-Public Use
  Company Number: US-APIL-2310383US

PATIENT
  Sex: Female

DRUGS (2)
  1. ALPHAGAN P [Suspect]
     Active Substance: BRIMONIDINE TARTRATE
     Indication: Borderline glaucoma
     Dosage: 2 GTT, QD
     Route: 047
  2. ALPHAGAN P [Suspect]
     Active Substance: BRIMONIDINE TARTRATE
     Indication: Intraocular pressure increased

REACTIONS (7)
  - Cataract [Unknown]
  - Product administered at inappropriate site [Unknown]
  - Overdose [Unknown]
  - Gait disturbance [Unknown]
  - Hypotension [Unknown]
  - Hypertension [Unknown]
  - Nausea [Unknown]
